FAERS Safety Report 21665421 (Version 1)
Quarter: 2022Q4

REPORT INFORMATION
  Report Type: Report from Study
  Country: US (occurrence: US)
  Receive Date: 20221201
  Receipt Date: 20221201
  Transmission Date: 20230112
  Serious: No
  Sender: FDA-Public Use
  Company Number: US-BIOVITRUM-2022US14112

PATIENT
  Age: 1 Year
  Sex: Female

DRUGS (6)
  1. SYNAGIS [Suspect]
     Active Substance: PALIVIZUMAB
     Indication: Premature baby
     Dosage: 100MG/1ML
  2. SYNAGIS [Suspect]
     Active Substance: PALIVIZUMAB
     Indication: Pulmonary artery stenosis
  3. SALINE [Concomitant]
     Active Substance: SODIUM CHLORIDE
  4. ALBUTEROL [Concomitant]
     Active Substance: ALBUTEROL
  5. SYNAGIS [Suspect]
     Active Substance: PALIVIZUMAB
     Indication: Tracheostomy
  6. SYNAGIS [Suspect]
     Active Substance: PALIVIZUMAB
     Indication: Atrial septal defect

REACTIONS (2)
  - Rash [Unknown]
  - Product dose omission issue [Unknown]

NARRATIVE: CASE EVENT DATE: 20221101
